FAERS Safety Report 24566775 (Version 1)
Quarter: 2024Q4

REPORT INFORMATION
  Report Type: Spontaneous
  Country: JP (occurrence: JP)
  Receive Date: 20241030
  Receipt Date: 20241030
  Transmission Date: 20250114
  Serious: Yes (Hospitalization)
  Sender: EAGLE
  Company Number: A202400357-001

PATIENT
  Age: 60 Year
  Sex: Male

DRUGS (3)
  1. BENDAMUSTINE HYDROCHLORIDE [Suspect]
     Active Substance: BENDAMUSTINE HYDROCHLORIDE
     Indication: Follicular lymphoma recurrent
     Dosage: UNK, GB THERAPY
     Route: 042
  2. OBINUTUZUMAB [Suspect]
     Active Substance: OBINUTUZUMAB
     Indication: Follicular lymphoma recurrent
     Dosage: UNK, GB THERAPY
     Route: 042
  3. OBINUTUZUMAB [Suspect]
     Active Substance: OBINUTUZUMAB
     Dosage: UNK, MAINTENANCE THERAPY
     Route: 042

REACTIONS (1)
  - Post-acute COVID-19 syndrome [Recovering/Resolving]
